FAERS Safety Report 5492343-8 (Version None)
Quarter: 2007Q4

REPORT INFORMATION
  Report Type: 
  Country: None (occurrence: None)
  Receive Date: 20071022
  Receipt Date: 20071008
  Transmission Date: 20080405
  Serious: Yes (Disabling, Other)
  Sender: FDA-Public Use
  Company Number: GB-RANBAXY-2007RR-10573

PATIENT

DRUGS (2)
  1. SIMVASTATIN 10MG TABLETS [Suspect]
     Indication: HYPERCHOLESTEROLAEMIA
     Dosage: 80 MG, QD
     Route: 048
     Dates: start: 20070911
  2. ERYTHROMYCIN TABLETS BP 250MG [Concomitant]
     Indication: WOUND INFECTION
     Dosage: 500 MG, QID
     Route: 048
     Dates: start: 20070820, end: 20070911

REACTIONS (3)
  - ASPARTATE AMINOTRANSFERASE INCREASED [None]
  - RHABDOMYOLYSIS [None]
  - TROPONIN T INCREASED [None]
